FAERS Safety Report 9493313 (Version 2)
Quarter: 2013Q3

REPORT INFORMATION
  Report Type: Spontaneous
  Country: US (occurrence: US)
  Receive Date: 20130902
  Receipt Date: 20130902
  Transmission Date: 20140515
  Serious: Yes (Other)
  Sender: FDA-Public Use
  Company Number: US-JNJCP-30000177270

PATIENT
  Sex: Male
  Weight: 72 kg

DRUGS (10)
  1. NEUTROGENA WET SKIN SUNBLOCK SPRAY SPF50 [Suspect]
     Indication: PROPHYLAXIS
     Dosage: LIBERALLY OVER ARMS AND LEGS, SOME ON FACE, EVERY EIGHTY MINUTES THREE TIMES PER WEEK
     Route: 061
  2. CRESTOR [Concomitant]
     Indication: BLOOD CHOLESTEROL ABNORMAL
  3. ADVAIRE [Concomitant]
     Indication: ASTHMA EXERCISE INDUCED
     Dosage: SINCE FIFTEEN YEARS
  4. GENERIC ASTHSMA MEDICINE [Concomitant]
     Indication: ASTHMA EXERCISE INDUCED
     Dosage: SINCE FIFTEEN YEARS
  5. PROAIR [Concomitant]
     Indication: ASTHMA EXERCISE INDUCED
     Dosage: SINCE FIFTEEN YEARS
  6. UNSPECIFIED ANTI-ACNE PRODUCT [Concomitant]
     Indication: PRODUCT USED FOR UNKNOWN INDICATION
     Dosage: SINCE SEVERAL YEARS
  7. UNSPECIFIED SEMI LIQUID SUN BLOCK [Concomitant]
     Indication: PRODUCT USED FOR UNKNOWN INDICATION
  8. CHLORTHALIDONE [Concomitant]
     Indication: BLOOD PRESSURE ABNORMAL
  9. UNSPECIFIED TREATMENTS [Concomitant]
     Indication: ROSACEA
     Dosage: OCCASIONALLY
  10. PRIMIDONE [Concomitant]
     Indication: LIMB DISCOMFORT
     Dosage: ROUTINELY, SINCE PAST TWO YEARS

REACTIONS (2)
  - Skin hyperpigmentation [Not Recovered/Not Resolved]
  - Vasculitis [Not Recovered/Not Resolved]
